FAERS Safety Report 14015565 (Version 5)
Quarter: 2018Q2

REPORT INFORMATION
  Report Type: Spontaneous
  Country: JP (occurrence: JP)
  Receive Date: 20170927
  Receipt Date: 20180411
  Transmission Date: 20180711
  Serious: Yes (Death, Hospitalization)
  Sender: FDA-Public Use
  Company Number: JP-UNITED THERAPEUTICS-UNT-2017-007711

PATIENT
  Age: 7 Decade
  Sex: Female

DRUGS (6)
  1. REMODULIN [Suspect]
     Active Substance: TREPROSTINIL
     Dosage: 7.5 MCL/HR
     Route: 058
  2. REMODULIN [Suspect]
     Active Substance: TREPROSTINIL
     Dosage: 10 MCL/HR
     Route: 058
     Dates: start: 20171019
  3. DOBUTAMINE                         /00493402/ [Concomitant]
     Indication: CARDIAC FAILURE
     Dosage: UNK
     Route: 041
     Dates: start: 2017, end: 2017
  4. REMODULIN [Suspect]
     Active Substance: TREPROSTINIL
     Dosage: 12 MCL/HR
     Route: 058
  5. REMODULIN [Suspect]
     Active Substance: TREPROSTINIL
     Indication: PORTOPULMONARY HYPERTENSION
     Dosage: 1.5 MCL/HR
     Route: 058
     Dates: start: 20170424, end: 201801
  6. PIMOBENDAN [Suspect]
     Active Substance: PIMOBENDAN
     Indication: CARDIAC FAILURE
     Dosage: UNK
     Route: 048
     Dates: start: 2017

REACTIONS (10)
  - Malaise [Unknown]
  - Device occlusion [Unknown]
  - Headache [Unknown]
  - Pulmonary hypertension [Fatal]
  - Dehydration [Recovered/Resolved]
  - Device infusion issue [Unknown]
  - Syncope [Unknown]
  - Right ventricular failure [Fatal]
  - Decreased appetite [Recovered/Resolved]
  - Infusion site pain [Unknown]

NARRATIVE: CASE EVENT DATE: 2017
